FAERS Safety Report 9340446 (Version 1)
Quarter: 2013Q2

REPORT INFORMATION
  Report Type: Spontaneous
  Country: US (occurrence: None)
  Receive Date: 20130610
  Receipt Date: 20130610
  Transmission Date: 20140414
  Serious: Yes (Other)
  Sender: FDA-Public Use
  Company Number: None

PATIENT
  Age: 35 Year
  Sex: Female
  Weight: 52.16 kg

DRUGS (1)
  1. XEOMIN [Suspect]
     Indication: SKIN WRINKLING
     Dosage: 1 TIME
     Dates: start: 20130507

REACTIONS (14)
  - Insomnia [None]
  - Weight decreased [None]
  - Dyspnoea [None]
  - Dizziness [None]
  - Dysphagia [None]
  - Dyspepsia [None]
  - Nausea [None]
  - Fatigue [None]
  - Ear discomfort [None]
  - Muscular weakness [None]
  - Pharyngeal disorder [None]
  - Diarrhoea [None]
  - Influenza like illness [None]
  - Asthenia [None]
